FAERS Safety Report 18566298 (Version 2)
Quarter: 2020Q4

REPORT INFORMATION
  Report Type: Spontaneous
  Country: IT (occurrence: IT)
  Receive Date: 20201201
  Receipt Date: 20201204
  Transmission Date: 20210114
  Serious: Yes (Other)
  Sender: FDA-Public Use
  Company Number: IT-PFIZER INC-2019518819

PATIENT
  Age: 21 Year
  Sex: Male

DRUGS (2)
  1. SERTRALINE HCL [Suspect]
     Active Substance: SERTRALINE HYDROCHLORIDE
     Indication: DEPRESSION
     Dosage: 100 MG, 1X/DAY(100 MG/DIE)
  2. SERTRALINE HCL [Suspect]
     Active Substance: SERTRALINE HYDROCHLORIDE
     Dosage: UNK (TAPERED)

REACTIONS (14)
  - Sexual dysfunction [Recovering/Resolving]
  - Body temperature abnormal [Not Recovered/Not Resolved]
  - Drug withdrawal syndrome [Not Recovered/Not Resolved]
  - Irritability [Unknown]
  - Memory impairment [Unknown]
  - Loss of libido [Not Recovered/Not Resolved]
  - Emotional disorder [Not Recovered/Not Resolved]
  - Abnormal behaviour [Unknown]
  - Erectile dysfunction [Not Recovered/Not Resolved]
  - Toxicity to various agents [Unknown]
  - Dissociation [Not Recovered/Not Resolved]
  - Drug ineffective [Unknown]
  - Premature ejaculation [Not Recovered/Not Resolved]
  - Genital anaesthesia [Not Recovered/Not Resolved]
